FAERS Safety Report 17055273 (Version 1)
Quarter: 2019Q4

REPORT INFORMATION
  Report Type: Report from Study
  Country: FR (occurrence: FR)
  Receive Date: 20191120
  Receipt Date: 20191120
  Transmission Date: 20200122
  Serious: Yes (Other)
  Sender: FDA-Public Use
  Company Number: FR-JAZZ-2019-FR-006930

PATIENT

DRUGS (1)
  1. DEFITELIO [Suspect]
     Active Substance: DEFIBROTIDE SODIUM
     Indication: VENOOCCLUSIVE LIVER DISEASE
     Dosage: 23.6 MG/KG/DAY
     Route: 065
     Dates: start: 20150318, end: 20150404

REACTIONS (13)
  - Melaena [Unknown]
  - Thrombocytopenia [Unknown]
  - Enterococcal sepsis [Unknown]
  - Sepsis [Unknown]
  - Gastritis fungal [Unknown]
  - Epistaxis [Unknown]
  - Generalised oedema [Unknown]
  - Clostridium colitis [Unknown]
  - Klebsiella sepsis [Unknown]
  - Osteoporosis [Unknown]
  - Cystitis escherichia [Unknown]
  - Underdose [Unknown]
  - Intentional product use issue [Unknown]

NARRATIVE: CASE EVENT DATE: 20150318
